FAERS Safety Report 9702084 (Version 3)
Quarter: 2020Q3

REPORT INFORMATION
  Report Type: Spontaneous
  Country: DE (occurrence: DE)
  Receive Date: 20131121
  Receipt Date: 20200828
  Transmission Date: 20201103
  Serious: Yes (Life-Threatening, Hospitalization, Congenital Anomaly, Other)
  Sender: FDA-Public Use
  Company Number: DE-PFIZER INC-2013327473

PATIENT
  Sex: Male

DRUGS (12)
  1. FILGRASTIM [Concomitant]
     Active Substance: FILGRASTIM
     Indication: CHEMOTHERAPY
     Dosage: TWICE DURING PREGNANCY ON 14SEP2012 (30.6. GESTATIONAL WEEK)
     Route: 064
     Dates: start: 20120914
  2. FILGRASTIM [Concomitant]
     Active Substance: FILGRASTIM
     Dosage: TWICE DURING PREGNANCY ON 05OCT2012 (33.6. GESTATIONAL WEEK)
     Route: 064
     Dates: start: 20121005
  3. DEXAMETHASONE. [Concomitant]
     Active Substance: DEXAMETHASONE
     Indication: PROPHYLAXIS OF NAUSEA AND VOMITING
     Dosage: TWICE DURING PREGNANCY ON 14SEP2012 (30.6. GESTATIONAL WEEK)
     Route: 064
     Dates: start: 20120914
  4. ONDANSETRON [Concomitant]
     Active Substance: ONDANSETRON
     Indication: PROPHYLAXIS OF NAUSEA AND VOMITING
     Dosage: TWICE DURING PREGNANCY ON 14SEP2012 (30.6. GESTATIONAL WEEK)
     Route: 064
     Dates: start: 20120914
  5. LAMOTRIGINE. [Suspect]
     Active Substance: LAMOTRIGINE
     Indication: EPILEPSY
     Dosage: BEGIN OF PREGNANCY: 2X50 MG; IN THE END: 2X150 MG, 0.?37.2. GESTATIONAL WEEK
     Route: 064
     Dates: start: 20120211, end: 20121029
  6. EPIRUBICIN HCL [Suspect]
     Active Substance: EPIRUBICIN HYDROCHLORIDE
     Indication: BREAST CANCER
     Dosage: 156 MG, TWICE DURING PREGNANCY ON 14SEP2012 (30.6. GESTATIONAL WEEK)
     Route: 064
     Dates: start: 20120914
  7. ONDANSETRON [Concomitant]
     Active Substance: ONDANSETRON
     Dosage: TWICE DURING PREGNANCY ON 05OCT2012 (33.6. GESTATIONAL WEEK)
     Route: 064
     Dates: start: 20121005
  8. EPIRUBICIN HCL [Suspect]
     Active Substance: EPIRUBICIN HYDROCHLORIDE
     Dosage: 156 MG, TWICE DURING PREGNANCY ON 05OCT2012 (33.6. GESTATIONAL WEEK)
     Route: 064
     Dates: start: 20121005
  9. CYCLOPHOSPHAMIDE. [Suspect]
     Active Substance: CYCLOPHOSPHAMIDE
     Dosage: 1040 MG, TWICE DURING PREGNANCY ON 05OCT2012 (33.6. GESTATIONAL WEEK)
     Route: 064
     Dates: start: 20121005
  10. FOLSAURE [Concomitant]
     Active Substance: FOLIC ACID
     Indication: PROPHYLAXIS OF NEURAL TUBE DEFECT
     Dosage: 5 MG, DAILY, 0.?37.2. GESTATIONAL WEEK
     Route: 064
     Dates: start: 20120211, end: 20121029
  11. CYCLOPHOSPHAMIDE. [Suspect]
     Active Substance: CYCLOPHOSPHAMIDE
     Indication: BREAST CANCER
     Dosage: 1040 MG, TWICE DURING PREGNANCY ON 14SEP2012 (30.6. GESTATIONAL WEEK)
     Route: 064
     Dates: start: 20120914
  12. DEXAMETHASONE. [Concomitant]
     Active Substance: DEXAMETHASONE
     Dosage: TWICE DURING PREGNANCY ON 05OCT2012 (33.6. GESTATIONAL WEEK)
     Route: 064
     Dates: start: 20121005

REACTIONS (6)
  - Maternal exposure during pregnancy [Unknown]
  - Hypospadias [Not Recovered/Not Resolved]
  - Pulmonary artery stenosis congenital [Unknown]
  - Atrial septal defect [Not Recovered/Not Resolved]
  - Neonatal respiratory distress syndrome [Recovered/Resolved]
  - Neonatal hypotension [Unknown]

NARRATIVE: CASE EVENT DATE: 20120211
